FAERS Safety Report 22290466 (Version 2)
Quarter: 2023Q2

REPORT INFORMATION
  Report Type: Spontaneous
  Country: US (occurrence: US)
  Receive Date: 20230505
  Receipt Date: 20230515
  Transmission Date: 20230721
  Serious: Yes (Hospitalization, Other)
  Sender: FDA-Public Use
  Company Number: US-009507513-2305USA001756

PATIENT
  Sex: Female

DRUGS (2)
  1. KEYTRUDA [Suspect]
     Active Substance: PEMBROLIZUMAB
     Indication: Endometrial cancer
     Dosage: 200 MILLIGRAM (MG), EVERY 21 DAYS (Q3W)
     Route: 042
  2. LENVATINIB MESYLATE [Suspect]
     Active Substance: LENVATINIB MESYLATE
     Indication: Endometrial cancer
     Dosage: 20 MILLIGRAM, CYCLICAL
     Route: 048

REACTIONS (6)
  - Urinary retention [Recovered/Resolved]
  - Cystitis noninfective [Recovered/Resolved]
  - Oedema [Unknown]
  - Blood thyroid stimulating hormone increased [Recovered/Resolved]
  - Protein urine present [Recovered/Resolved]
  - White blood cells urine positive [Recovered/Resolved]

NARRATIVE: CASE EVENT DATE: 20230101
